FAERS Safety Report 15538114 (Version 1)
Quarter: 2018Q4

REPORT INFORMATION
  Report Type: Spontaneous
  Country: DZ (occurrence: DZ)
  Receive Date: 20181022
  Receipt Date: 20181022
  Transmission Date: 20190205
  Serious: Yes (Other)
  Sender: FDA-Public Use
  Company Number: DZ-IPSEN BIOPHARMACEUTICALS, INC.-2018-15788

PATIENT
  Age: 40 Year
  Sex: Female

DRUGS (1)
  1. SMEBIOCTA [Suspect]
     Active Substance: LACTOBACILLUS PLANTARUM
     Indication: GASTROINTESTINAL DISORDER
     Dosage: NOT REPORTED
     Route: 048

REACTIONS (1)
  - Dizziness [Unknown]
